FAERS Safety Report 4556156-3 (Version None)
Quarter: 2005Q1

REPORT INFORMATION
  Report Type: 
  Country: None (occurrence: None)
  Receive Date: 20050119
  Receipt Date: 20050110
  Transmission Date: 20050727
  Serious: Yes (Hospitalization, Other)
  Sender: FDA-Public Use
  Company Number: SK-ABBOTT-05P-260-0286833-00

PATIENT
  Age: 40 Year
  Sex: Male

DRUGS (6)
  1. KLACID [Suspect]
     Indication: NEPHROLITHIASIS
     Route: 048
     Dates: start: 20041005, end: 20041016
  2. KLACID [Suspect]
     Indication: CALCULUS URINARY
  3. METIPRANOLOL [Concomitant]
     Indication: ATRIAL FIBRILLATION
     Route: 048
     Dates: start: 20040901
  4. METIPRANOLOL [Concomitant]
     Indication: ATRIAL FLUTTER
  5. ACETYLSALICYLIC ACID SRT [Concomitant]
     Indication: ATRIAL FIBRILLATION
     Route: 048
     Dates: start: 20040901
  6. ACETYLSALICYLIC ACID SRT [Concomitant]
     Indication: ATRIAL FLUTTER

REACTIONS (2)
  - ANGIONEUROTIC OEDEMA [None]
  - URTICARIA [None]
